FAERS Safety Report 14330518 (Version 3)
Quarter: 2020Q3

REPORT INFORMATION
  Report Type: Report from Study
  Country: PT (occurrence: PT)
  Receive Date: 20171227
  Receipt Date: 20180221
  Transmission Date: 20201104
  Serious: Yes (Hospitalization, Other)
  Sender: FDA-Public Use
  Company Number: PT-BAUSCH-BL-2017-035242

PATIENT
  Age: 58 Year
  Sex: Female

DRUGS (34)
  1. LACTULOSE. [Concomitant]
     Active Substance: LACTULOSE
     Indication: CONSTIPATION
     Route: 048
     Dates: start: 20160928
  2. LACTULOSE. [Concomitant]
     Active Substance: LACTULOSE
     Dosage: ONE SPOON
     Route: 048
  3. GABAPENTIN. [Concomitant]
     Active Substance: GABAPENTIN
     Dosage: 400.00 MG TID
     Route: 048
     Dates: start: 20160928
  4. CLOBAZAM. [Concomitant]
     Active Substance: CLOBAZAM
     Indication: DEPRESSION
     Dosage: 20.00 MG PRN ; AS NECESSARY
     Route: 048
     Dates: start: 20160907
  5. MEDI4736 [Suspect]
     Active Substance: DURVALUMAB
     Indication: NON-SMALL CELL LUNG CANCER
     Dosage: 20 MG/KG, CYCLIC (ONCE EVERY FOUR WEEKS) ; CYCLICAL
     Route: 042
     Dates: start: 20161104, end: 20161104
  6. GABAPENTIN. [Concomitant]
     Active Substance: GABAPENTIN
     Indication: PAIN
     Dosage: 400.00 MG TID
     Route: 048
  7. MORPHINE SULFATE. [Concomitant]
     Active Substance: MORPHINE SULFATE
     Dosage: 20.00 MG PRN; AS NECESSARY
     Route: 048
     Dates: start: 20160928
  8. MIRTAZAPIN [Concomitant]
     Active Substance: MIRTAZAPINE
     Indication: DEPRESSION
     Route: 048
     Dates: start: 20160907
  9. SENE [Concomitant]
     Indication: CONSTIPATION
     Route: 048
     Dates: start: 20160928
  10. PANTOPRAZOL [Concomitant]
     Active Substance: PANTOPRAZOLE SODIUM
     Indication: PROPHYLAXIS
     Route: 048
     Dates: start: 20160928
  11. MEDI4736 [Suspect]
     Active Substance: DURVALUMAB
     Dosage: 20 MG/KG, CYCLIC (ONCE EVERY FOUR WEEKS) ; CYCLICAL
     Route: 042
     Dates: start: 20161130, end: 20161130
  12. NYSTATIN. [Concomitant]
     Active Substance: NYSTATIN
     Route: 048
  13. MIRTAZAPIN [Concomitant]
     Active Substance: MIRTAZAPINE
     Route: 048
  14. METILPREDNISOLONA [Concomitant]
     Active Substance: METHYLPREDNISOLONE
     Route: 048
  15. AMITRIPTILIN [Concomitant]
     Indication: DEPRESSION
     Route: 048
     Dates: start: 20160928
  16. TREMELIMUMAB. [Suspect]
     Active Substance: TREMELIMUMAB
     Indication: NON-SMALL CELL LUNG CANCER
     Dosage: 1 MG/KG, CYCLIC (ONCE EVERY FOUR WEEKS) ; CYCLICAL
     Route: 042
     Dates: start: 20161104, end: 20161104
  17. FENTANYL. [Concomitant]
     Active Substance: FENTANYL
     Indication: PAIN
     Dosage: 50.00 UG EVERY 72H ; CYCLICAL
     Route: 003
     Dates: start: 20160928
  18. PANTOPRAZOL [Concomitant]
     Active Substance: PANTOPRAZOLE SODIUM
     Route: 048
  19. SODIUM LAURYL [Concomitant]
     Indication: CONSTIPATION
     Dosage: 1.00 ENEMA PRN (AS NECESSARY) ; CYCLICAL
     Route: 054
     Dates: start: 20160928
  20. MORPHINE SULFATE. [Concomitant]
     Active Substance: MORPHINE SULFATE
     Indication: PAIN
     Dosage: 20.00 MG PRN ; AS NECESSARY
     Route: 048
     Dates: start: 20161104
  21. THIAMAZOLE [Concomitant]
     Active Substance: METHIMAZOLE
     Route: 048
  22. BISACODIL [Concomitant]
     Route: 048
  23. VENLAFAXINE HCL [Suspect]
     Active Substance: VENLAFAXINE HYDROCHLORIDE
     Indication: DEPRESSION
     Route: 048
     Dates: start: 20160907
  24. VENLAFAXINE HCL [Suspect]
     Active Substance: VENLAFAXINE HYDROCHLORIDE
     Dosage: 75MG EVERY HOUR
     Route: 048
     Dates: start: 20161229
  25. TREMELIMUMAB. [Suspect]
     Active Substance: TREMELIMUMAB
     Dosage: 1 MG/KG, CYCLIC (ONCE EVERY FOUR WEEKS) ; CYCLICAL
     Route: 042
     Dates: start: 20161130, end: 20161130
  26. VENLAFAXINE HCL [Suspect]
     Active Substance: VENLAFAXINE HYDROCHLORIDE
     Route: 048
     Dates: start: 20161128
  27. CLOBAZAM. [Concomitant]
     Active Substance: CLOBAZAM
     Dosage: 20.00 MG PRN ; AS NECESSARY
     Route: 048
  28. NYSTATIN. [Concomitant]
     Active Substance: NYSTATIN
     Indication: MUCOSAL INFLAMMATION
     Route: 048
     Dates: start: 20161117
  29. THIAMAZOLE [Concomitant]
     Active Substance: METHIMAZOLE
     Indication: THYROID CYST
     Route: 048
     Dates: start: 20160907
  30. SUCRALFATE. [Concomitant]
     Active Substance: SUCRALFATE
     Indication: PROPHYLAXIS
     Route: 048
     Dates: start: 20160928
  31. METILPREDNISOLONA [Concomitant]
     Active Substance: METHYLPREDNISOLONE
     Indication: PAIN
     Route: 048
     Dates: start: 20161021
  32. SODIUM CITRATE. [Concomitant]
     Active Substance: SODIUM CITRATE
     Indication: CONSTIPATION
     Dosage: 1.00 MICROENEMA PRN: AS NECESSARY
     Route: 054
  33. FENTANYL. [Concomitant]
     Active Substance: FENTANYL
     Route: 003
  34. BISACODIL [Concomitant]
     Indication: CONSTIPATION
     Route: 048
     Dates: start: 20160928

REACTIONS (1)
  - Drug-induced liver injury [Not Recovered/Not Resolved]

NARRATIVE: CASE EVENT DATE: 20161229
